FAERS Safety Report 24780287 (Version 3)
Quarter: 2025Q1

REPORT INFORMATION
  Report Type: Spontaneous
  Country: IT (occurrence: IT)
  Receive Date: 20241227
  Receipt Date: 20250209
  Transmission Date: 20250409
  Serious: No
  Sender: UCB
  Company Number: IT-UCBSA-2024068004

PATIENT
  Sex: Female

DRUGS (1)
  1. NEUPRO [Suspect]
     Active Substance: ROTIGOTINE
     Indication: Product used for unknown indication
     Dosage: 2 MILLIGRAM, ONCE DAILY (QD) (PER 24 HOURS)
     Route: 062

REACTIONS (1)
  - Product adhesion issue [Unknown]
